FAERS Safety Report 14299818 (Version 1)
Quarter: 2017Q4

REPORT INFORMATION
  Report Type: Spontaneous
  Country: US (occurrence: US)
  Receive Date: 20171219
  Receipt Date: 20171219
  Transmission Date: 20180321
  Serious: No
  Sender: FDA-Public Use
  Company Number: US-ROCHE-2036340

PATIENT
  Sex: Female
  Weight: 90.8 kg

DRUGS (2)
  1. OCREVUS [Suspect]
     Active Substance: OCRELIZUMAB
     Indication: PRIMARY PROGRESSIVE MULTIPLE SCLEROSIS
     Dosage: SECOND INFUSION RECEIVED ON 13/SEP/2017
     Route: 042
     Dates: start: 20170830
  2. ALBUTEROL. [Concomitant]
     Active Substance: ALBUTEROL
     Route: 065
     Dates: start: 20171205

REACTIONS (12)
  - Fatigue [Unknown]
  - Erythema [Unknown]
  - Dyspnoea [Unknown]
  - Sleep disorder [Not Recovered/Not Resolved]
  - Feeling hot [Unknown]
  - Rash pruritic [Unknown]
  - Weight increased [Not Recovered/Not Resolved]
  - Nasopharyngitis [Not Recovered/Not Resolved]
  - Burning sensation [Unknown]
  - Chest discomfort [Not Recovered/Not Resolved]
  - Hunger [Not Recovered/Not Resolved]
  - Increased appetite [Not Recovered/Not Resolved]
